FAERS Safety Report 25739357 (Version 1)
Quarter: 2025Q3

REPORT INFORMATION
  Report Type: Spontaneous
  Country: BR (occurrence: US)
  Receive Date: 20250829
  Receipt Date: 20250829
  Transmission Date: 20251020
  Serious: No
  Sender: MERCK SHARP & DOHME LLC
  Company Number: BR-009507513-2324289

PATIENT
  Age: 39 Year
  Sex: Female

DRUGS (2)
  1. PEMBROLIZUMAB [Suspect]
     Active Substance: PEMBROLIZUMAB
     Indication: Pancreatic neuroendocrine tumour metastatic
  2. LENVATINIB [Suspect]
     Active Substance: LENVATINIB
     Indication: Pancreatic neuroendocrine tumour metastatic

REACTIONS (1)
  - Product use in unapproved indication [Unknown]
